FAERS Safety Report 4353103-4 (Version None)
Quarter: 2004Q2

REPORT INFORMATION
  Report Type: 
  Country: None (occurrence: None)
  Receive Date: 20040429
  Receipt Date: 20040415
  Transmission Date: 20050107
  Serious: Yes (Hospitalization)
  Sender: FDA-Public Use
  Company Number: 2004AP02202

PATIENT
  Age: 65 Year
  Sex: Male

DRUGS (4)
  1. SEROQUEL [Suspect]
     Indication: WERNICKE-KORSAKOFF SYNDROME
     Dosage: 100 MG DAILY PO
     Route: 048
     Dates: start: 20031226, end: 20040216
  2. SEROQUEL [Suspect]
     Indication: WERNICKE-KORSAKOFF SYNDROME
     Dosage: 50 MG DAILY PO
     Route: 048
     Dates: start: 20040217, end: 20040226
  3. SEROQUEL [Suspect]
     Indication: WERNICKE-KORSAKOFF SYNDROME
     Dosage: 25 MG DAILY PO
     Route: 048
     Dates: start: 20040227, end: 20040302
  4. CLEANAL [Suspect]
     Dosage: 1200 MG DAILY PO
     Route: 048
     Dates: start: 20031213, end: 20040217

REACTIONS (5)
  - GRANULOCYTE COUNT DECREASED [None]
  - HAEMATOCRIT DECREASED [None]
  - HAEMOGLOBIN DECREASED [None]
  - RED BLOOD CELL COUNT DECREASED [None]
  - WHITE BLOOD CELL COUNT DECREASED [None]
